FAERS Safety Report 19002431 (Version 3)
Quarter: 2021Q3

REPORT INFORMATION
  Report Type: Spontaneous
  Country: JP (occurrence: JP)
  Receive Date: 20210312
  Receipt Date: 20210715
  Transmission Date: 20211014
  Serious: Yes (Death)
  Sender: FDA-Public Use
  Company Number: JP-PFIZER INC-2021230888

PATIENT
  Age: 68 Year
  Sex: Male

DRUGS (16)
  1. GRACEPTOR [Suspect]
     Active Substance: TACROLIMUS
     Indication: MONOCLONAL IMMUNOGLOBULIN PRESENT
  2. PREDNISOLONE. [Suspect]
     Active Substance: PREDNISOLONE
     Indication: MONOCLONAL IMMUNOGLOBULIN PRESENT
  3. RITUXIMAB. [Suspect]
     Active Substance: RITUXIMAB
     Indication: MONOCLONAL IMMUNOGLOBULIN PRESENT
  4. METHYLPREDNISOLONE SODIUM SUCCINATE. [Suspect]
     Active Substance: METHYLPREDNISOLONE SODIUM SUCCINATE
     Dosage: UNK (PULSE THERAPY)
  5. GRACEPTOR [Suspect]
     Active Substance: TACROLIMUS
     Indication: GLOMERULONEPHRITIS PROLIFERATIVE
  6. CELLCEPT [Suspect]
     Active Substance: MYCOPHENOLATE MOFETIL\MYCOPHENOLATE MOFETIL HYDROCHLORIDE
     Indication: MONOCLONAL IMMUNOGLOBULIN PRESENT
  7. IMMUNOGLOBULIN I.V [Suspect]
     Active Substance: HUMAN IMMUNOGLOBULIN G
     Indication: MONOCLONAL IMMUNOGLOBULIN PRESENT
  8. RITUXIMAB. [Suspect]
     Active Substance: RITUXIMAB
     Indication: GLOMERULONEPHRITIS MEMBRANOPROLIFERATIVE
     Dosage: 200 MG/BODY 2 WEEKS BEFORE TRANSPLANTATION
  9. IMMUNOGLOBULIN I.V [Suspect]
     Active Substance: HUMAN IMMUNOGLOBULIN G
     Indication: GLOMERULONEPHRITIS MEMBRANOPROLIFERATIVE
     Dosage: 6 G
     Route: 042
  10. CELLCEPT [Suspect]
     Active Substance: MYCOPHENOLATE MOFETIL\MYCOPHENOLATE MOFETIL HYDROCHLORIDE
     Indication: GLOMERULONEPHRITIS MEMBRANOPROLIFERATIVE
     Dosage: UNK
  11. CELLCEPT [Suspect]
     Active Substance: MYCOPHENOLATE MOFETIL\MYCOPHENOLATE MOFETIL HYDROCHLORIDE
     Indication: GLOMERULONEPHRITIS PROLIFERATIVE
  12. PREDNISOLONE. [Suspect]
     Active Substance: PREDNISOLONE
     Indication: GLOMERULONEPHRITIS PROLIFERATIVE
  13. RITUXIMAB. [Suspect]
     Active Substance: RITUXIMAB
     Indication: GLOMERULONEPHRITIS PROLIFERATIVE
  14. IMMUNOGLOBULIN I.V [Suspect]
     Active Substance: HUMAN IMMUNOGLOBULIN G
     Indication: GLOMERULONEPHRITIS PROLIFERATIVE
  15. GRACEPTOR [Suspect]
     Active Substance: TACROLIMUS
     Indication: GLOMERULONEPHRITIS MEMBRANOPROLIFERATIVE
     Dosage: UNK
  16. PREDNISOLONE. [Suspect]
     Active Substance: PREDNISOLONE
     Indication: GLOMERULONEPHRITIS MEMBRANOPROLIFERATIVE
     Dosage: 35 MG, DAILY
     Route: 048

REACTIONS (2)
  - Off label use [Fatal]
  - Drug ineffective for unapproved indication [Fatal]
